FAERS Safety Report 11662406 (Version 1)
Quarter: 2015Q4

REPORT INFORMATION
  Report Type: Spontaneous
  Country: US (occurrence: US)
  Receive Date: 20151027
  Receipt Date: 20151027
  Transmission Date: 20160304
  Serious: Yes (Other)
  Sender: FDA-Public Use
  Company Number: US-DRREDDYS-USA/USA/15/0053539

PATIENT
  Age: 75 Year
  Sex: Female

DRUGS (2)
  1. LETROZOLE TABLETS, USP 2.5 MG [Suspect]
     Active Substance: LETROZOLE
     Indication: OESTROGEN RECEPTOR POSITIVE BREAST CANCER
     Route: 065
  2. EVAROLIMUS [Suspect]
     Active Substance: EVEROLIMUS
     Indication: OESTROGEN RECEPTOR POSITIVE BREAST CANCER
     Route: 065

REACTIONS (3)
  - Oral disorder [Recovered/Resolved]
  - Product quality issue [Unknown]
  - Drug effect incomplete [Unknown]
